FAERS Safety Report 7347115-6 (Version None)
Quarter: 2011Q1

REPORT INFORMATION
  Report Type: 
  Country: None (occurrence: None)
  Receive Date: 20110311
  Receipt Date: 20110303
  Transmission Date: 20110831
  Serious: Yes (Other)
  Sender: FDA-Public Use
  Company Number: IE-NOVOPROD-324459

PATIENT
  Sex: Male

DRUGS (3)
  1. METFORMIN [Concomitant]
     Indication: DIABETES MELLITUS
     Dosage: UNK
     Route: 048
  2. LIPITOR [Concomitant]
     Indication: BLOOD CHOLESTEROL
     Dosage: UNK
     Route: 048
  3. VICTOZA [Suspect]
     Indication: DIABETES MELLITUS
     Dosage: UK / SUB CUTANEOUS
     Route: 058

REACTIONS (1)
  - LIVER FUNCTION TEST ABNORMAL [None]
